FAERS Safety Report 6538198-1 (Version None)
Quarter: 2010Q1

REPORT INFORMATION
  Report Type: 
  Country: None (occurrence: None)
  Receive Date: 20100114
  Receipt Date: 20100104
  Transmission Date: 20100710
  Serious: Yes (Other)
  Sender: FDA-Public Use
  Company Number: ZA-PFIZER INC-2010005143

PATIENT
  Age: 69 Year
  Sex: Female

DRUGS (6)
  1. ASPAVOR [Suspect]
     Dosage: 20 MG, UNK
     Dates: start: 20080101
  2. FORTZAAR [Suspect]
     Dosage: UNK
  3. ELTROXIN [Suspect]
     Dosage: 0.1 MG, UNK
  4. ECOTRIN [Suspect]
     Dosage: 81 MG, UNK
  5. OMEPRAZOLE [Suspect]
     Dosage: 20 MG, UNK
  6. NEXIUM [Suspect]
     Dosage: UNK

REACTIONS (1)
  - RENAL FAILURE [None]
